FAERS Safety Report 4654625-9 (Version None)
Quarter: 2005Q2

REPORT INFORMATION
  Report Type: 
  Country: None (occurrence: None)
  Receive Date: 20050504
  Receipt Date: 20050504
  Transmission Date: 20051028
  Serious: Yes (Hospitalization)
  Sender: FDA-Public Use
  Company Number: None

PATIENT
  Sex: Female
  Weight: 62.1 kg

DRUGS (5)
  1. TAXOTERE [Suspect]
     Indication: ENDOMETRIAL CANCER RECURRENT
     Dosage: 49MG IVSS WEEKLY X 3
     Route: 042
     Dates: start: 20050418, end: 20050425
  2. TAXOTERE [Suspect]
  3. TOPOTECAN 3.5MG/M2 - GLAXO  SMITHKLINE [Suspect]
     Indication: ENDOMETRIAL CANCER RECURRENT
     Dosage: 5.7MG  IVSS  WEEKLY  X 3
     Route: 042
     Dates: start: 20050418, end: 20050425
  4. OXYCONTIN [Concomitant]
  5. VICODIN [Concomitant]

REACTIONS (3)
  - NAUSEA [None]
  - REFUSAL OF TREATMENT BY PATIENT [None]
  - VOMITING [None]
